FAERS Safety Report 9971275 (Version 2)
Quarter: 2014Q1

REPORT INFORMATION
  Report Type: Report from Study
  Country: US (occurrence: US)
  Receive Date: 20140306
  Receipt Date: 20140306
  Transmission Date: 20141002
  Serious: Yes (Other)
  Sender: FDA-Public Use
  Company Number: US-ABBVIE-13P-163-1085498-00

PATIENT
  Age: 49 Year
  Sex: Male
  Weight: 85.81 kg

DRUGS (35)
  1. HUMIRA [Suspect]
     Indication: RHEUMATOID ARTHRITIS
     Dates: start: 20120815, end: 20130429
  2. TESTOSTERONE CYPIONATE [Concomitant]
     Indication: PRODUCT USED FOR UNKNOWN INDICATION
  3. CYMBALTA [Concomitant]
     Indication: PRODUCT USED FOR UNKNOWN INDICATION
     Dosage: 60 MG DR PART
  4. ROPINIROLE [Concomitant]
     Indication: PRODUCT USED FOR UNKNOWN INDICATION
  5. HYDROXYCHLOROQUINE [Concomitant]
     Indication: PRODUCT USED FOR UNKNOWN INDICATION
  6. AMITREX [Concomitant]
     Indication: PRODUCT USED FOR UNKNOWN INDICATION
  7. FLAXSEED OIL [Concomitant]
     Indication: PRODUCT USED FOR UNKNOWN INDICATION
  8. MAGNESIUM [Concomitant]
     Indication: PRODUCT USED FOR UNKNOWN INDICATION
  9. VITAMIN C [Concomitant]
     Indication: PRODUCT USED FOR UNKNOWN INDICATION
  10. MULTIVITAMINS [Concomitant]
     Indication: PRODUCT USED FOR UNKNOWN INDICATION
  11. FIBER CAPS [Concomitant]
     Indication: PRODUCT USED FOR UNKNOWN INDICATION
  12. SUDAFED PE [Concomitant]
     Indication: PRODUCT USED FOR UNKNOWN INDICATION
  13. DEXILANT [Concomitant]
     Indication: PRODUCT USED FOR UNKNOWN INDICATION
  14. PENNSAID [Concomitant]
     Indication: PRODUCT USED FOR UNKNOWN INDICATION
  15. GARLIC TABS [Concomitant]
     Indication: PRODUCT USED FOR UNKNOWN INDICATION
  16. VITAMIN D3 [Concomitant]
     Indication: PRODUCT USED FOR UNKNOWN INDICATION
  17. EXCEDRIN MIGRAINE [Concomitant]
     Indication: PRODUCT USED FOR UNKNOWN INDICATION
     Dosage: 250-250-65
  18. SYMBICORT [Concomitant]
     Indication: PRODUCT USED FOR UNKNOWN INDICATION
     Dosage: 160-4.5MCG/ACT AEROSOL
  19. ALBUTEROL SULFATE [Concomitant]
     Indication: PRODUCT USED FOR UNKNOWN INDICATION
     Dosage: (2.5MG/3ML) 0.083% NEBULIZED SOLN
  20. SINGULAIR [Concomitant]
     Indication: PRODUCT USED FOR UNKNOWN INDICATION
  21. TESTOSTERONE ENANTHATE [Concomitant]
     Indication: PRODUCT USED FOR UNKNOWN INDICATION
     Dosage: 200MG/ML OIL
  22. GLUCOSAMINE COMPLEX [Concomitant]
     Indication: PRODUCT USED FOR UNKNOWN INDICATION
  23. MAGNESIUM CHLORIDE [Concomitant]
     Indication: PRODUCT USED FOR UNKNOWN INDICATION
  24. PROBIOTIC [Concomitant]
     Indication: PRODUCT USED FOR UNKNOWN INDICATION
  25. RED YEAST RICE [Concomitant]
     Indication: PRODUCT USED FOR UNKNOWN INDICATION
  26. PLAQUENIL [Concomitant]
     Indication: PRODUCT USED FOR UNKNOWN INDICATION
  27. TYLENOL EXTRA STRENGTH [Concomitant]
     Indication: PRODUCT USED FOR UNKNOWN INDICATION
  28. CALCIUM ANTACID [Concomitant]
     Indication: PRODUCT USED FOR UNKNOWN INDICATION
  29. OMEGA 3 [Concomitant]
     Indication: PRODUCT USED FOR UNKNOWN INDICATION
  30. PHENYLEPHRINE HCL [Concomitant]
     Indication: PRODUCT USED FOR UNKNOWN INDICATION
  31. FLUOCINONIDE [Concomitant]
     Indication: PRODUCT USED FOR UNKNOWN INDICATION
  32. IMITREX [Concomitant]
     Indication: PRODUCT USED FOR UNKNOWN INDICATION
  33. FIBER [Concomitant]
     Indication: PRODUCT USED FOR UNKNOWN INDICATION
  34. DEXILANT [Concomitant]
     Indication: PRODUCT USED FOR UNKNOWN INDICATION
  35. REQUIP [Concomitant]
     Indication: PRODUCT USED FOR UNKNOWN INDICATION

REACTIONS (2)
  - Malignant melanoma [Not Recovered/Not Resolved]
  - Basal cell carcinoma [Recovering/Resolving]
